FAERS Safety Report 4871489-9 (Version None)
Quarter: 2005Q4

REPORT INFORMATION
  Report Type: 
  Country: None (occurrence: None)
  Receive Date: 20051229
  Receipt Date: 20051219
  Transmission Date: 20060501
  Serious: Yes (Hospitalization, Other)
  Sender: FDA-Public Use
  Company Number: 2005-DE-05576GD

PATIENT
  Age: 74 Year
  Sex: Male

DRUGS (14)
  1. DILTIAZEM HYDROCHLORIDE [Suspect]
     Indication: ATRIAL FIBRILLATION
     Dosage: SEE IMAGE
     Route: 048
  2. LOPERAMIDE [Suspect]
     Indication: DIARRHOEA
     Dosage: SEE IMAGE
  3. TRIMETHOPRIM-SULFAMETHOXAZOLE (INFECTRIN/00566501/) [Concomitant]
  4. CHLOROTHIAZIDE [Concomitant]
  5. SPIRONOLACTONE [Concomitant]
  6. ALLOPURINOL [Concomitant]
  7. ATORVASTATIN CALCIUM [Concomitant]
  8. FLUTICASONE/SALMETEROL (GALENIC/FLUTICASONE/SALMETEROL) [Concomitant]
  9. VORICONAZOLE (VORICONAZOLE) [Concomitant]
  10. TOBRAMYCIN [Concomitant]
  11. VANCOMYCIN [Concomitant]
  12. MEROPENEM (MEROPENEM) [Concomitant]
  13. AMIODARONE HCL [Concomitant]
  14. METRONIDAZOLE [Concomitant]

REACTIONS (12)
  - ABDOMINAL DISTENSION [None]
  - ATRIAL FIBRILLATION [None]
  - BACTERIA BLOOD IDENTIFIED [None]
  - BLOOD CREATININE INCREASED [None]
  - BOWEL SOUNDS ABNORMAL [None]
  - CHRONIC OBSTRUCTIVE PULMONARY DISEASE [None]
  - CONDITION AGGRAVATED [None]
  - ENTEROCOCCAL INFECTION [None]
  - ENTEROCOLITIS [None]
  - GASTROINTESTINAL HYPOMOTILITY [None]
  - INTESTINAL DILATATION [None]
  - INTESTINAL STENOSIS [None]
